FAERS Safety Report 10888581 (Version 1)
Quarter: 2015Q1

REPORT INFORMATION
  Report Type: Spontaneous
  Country: FR (occurrence: FR)
  Receive Date: 20150305
  Receipt Date: 20150305
  Transmission Date: 20150721
  Serious: Yes (Other)
  Sender: FDA-Public Use
  Company Number: FR-TEVA-514096ISR

PATIENT
  Age: 58 Year
  Sex: Female
  Weight: 170 kg

DRUGS (6)
  1. ESTREVA 0.1% [Concomitant]
     Dosage: 3 DOSAGE FORMS DAILY; DOSAGE FORM:APPLICATION
  2. LEVOTHYROX [Concomitant]
     Active Substance: LEVOTHYROXINE
     Indication: HYPOTHYROIDISM
     Dosage: 75 MICROGRAM DAILY;
  3. UVEDOSE 100000 IU [Concomitant]
     Dosage: AMPULE
     Route: 048
  4. IBUPROFEN TEVA 400 MG [Suspect]
     Active Substance: IBUPROFEN
     Indication: MIGRAINE
     Dates: end: 20140827
  5. UTROGESTAN 100 MG [Concomitant]
     Indication: HORMONE REPLACEMENT THERAPY
     Dosage: ONE CAPSULE TEN DAYS A MONTH
     Route: 048
  6. IBUPROFEN TEVA 400 MG [Suspect]
     Active Substance: IBUPROFEN
     Indication: ARTHRALGIA
     Dates: start: 201312

REACTIONS (1)
  - Micturition frequency decreased [Recovered/Resolved]

NARRATIVE: CASE EVENT DATE: 20140827
